FAERS Safety Report 9485470 (Version 3)
Quarter: 2013Q4

REPORT INFORMATION
  Report Type: Report from Study
  Country: CA (occurrence: CA)
  Receive Date: 20130829
  Receipt Date: 20131008
  Transmission Date: 20140711
  Serious: Yes (Other)
  Sender: FDA-Public Use
  Company Number: CA-ROCHE-1267353

PATIENT
  Age: 49 Year
  Sex: Male

DRUGS (13)
  1. RITUXAN [Suspect]
     Indication: DERMATOMYOSITIS
     Dosage: DAYS 1 AND 15
     Route: 042
     Dates: start: 20100909
  2. RITUXAN [Suspect]
     Indication: OFF LABEL USE
  3. GLUCONORM (CANADA) [Suspect]
     Indication: TYPE 2 DIABETES MELLITUS
     Route: 065
  4. PREDNISONE [Suspect]
     Indication: PRODUCT USED FOR UNKNOWN INDICATION
     Route: 065
  5. IMURAN [Concomitant]
  6. FOSAMAX [Concomitant]
  7. HYZAAR (CANADA) [Concomitant]
  8. DIPHENHYDRAMINE HCL [Concomitant]
     Indication: PREMEDICATION
     Route: 048
     Dates: start: 20100909
  9. ACETAMINOPHEN [Concomitant]
     Indication: PREMEDICATION
     Route: 048
     Dates: start: 20100909
  10. FOLIC ACID [Concomitant]
  11. METHOTREXATE [Concomitant]
  12. METFORMIN [Concomitant]
     Route: 065
  13. METHYLPREDNISOLONE [Concomitant]
     Route: 042
     Dates: start: 20130919

REACTIONS (2)
  - Blood glucose increased [Unknown]
  - Blood pressure increased [Unknown]
